FAERS Safety Report 6688304-3 (Version None)
Quarter: 2010Q2

REPORT INFORMATION
  Report Type: 
  Country: None (occurrence: None)
  Receive Date: 20100420
  Receipt Date: 20100412
  Transmission Date: 20101027
  Serious: Yes (Other)
  Sender: FDA-Public Use
  Company Number: US-JNJFOC-20091201197

PATIENT
  Sex: Male
  Weight: 65.77 kg

DRUGS (7)
  1. FENTANYL CITRATE [Suspect]
     Indication: NECK PAIN
     Route: 062
     Dates: start: 20090101
  2. FENTANYL CITRATE [Suspect]
     Indication: PAIN
     Route: 062
     Dates: start: 20090101
  3. FENTANYL CITRATE [Suspect]
     Indication: PAIN
     Route: 062
  4. FENTANYL CITRATE [Suspect]
     Route: 062
  5. FENTANYL CITRATE [Suspect]
     Route: 062
  6. FENTANYL CITRATE [Suspect]
     Route: 062
  7. TRAMADOL HCL [Concomitant]
     Indication: BREAKTHROUGH PAIN
     Route: 048

REACTIONS (8)
  - CONSTIPATION [None]
  - DECREASED APPETITE [None]
  - DRUG DEPENDENCE [None]
  - DRUG INEFFECTIVE [None]
  - MOOD SWINGS [None]
  - PYREXIA [None]
  - WITHDRAWAL SYNDROME [None]
  - WRONG TECHNIQUE IN DRUG USAGE PROCESS [None]
